FAERS Safety Report 16825828 (Version 1)
Quarter: 2019Q3

REPORT INFORMATION
  Report Type: Spontaneous
  Country: US (occurrence: US)
  Receive Date: 20190919
  Receipt Date: 20190919
  Transmission Date: 20191005
  Serious: No
  Sender: FDA-Public Use
  Company Number: US-GLENMARK PHARMACEUTICALS-2019GMK042274

PATIENT

DRUGS (1)
  1. ESTRADIOL VAGINAL INSERTS USP [Suspect]
     Active Substance: ESTRADIOL
     Indication: CYSTITIS
     Dosage: UNK, (TWO TIMES A WEEK); START DATE: FOR YEARS (5 TO 6); USING EXTERNALLY WITHOUT APPLICATOR
     Route: 050

REACTIONS (2)
  - Wrong technique in device usage process [Unknown]
  - Drug effective for unapproved indication [Unknown]
